FAERS Safety Report 10458859 (Version 1)
Quarter: 2014Q3

REPORT INFORMATION
  Report Type: Spontaneous
  Country: US (occurrence: None)
  Receive Date: 20140915
  Receipt Date: 20140915
  Transmission Date: 20150326
  Serious: Yes (Life-Threatening, Hospitalization)
  Sender: FDA-Public Use
  Company Number: 1713747-25014-999148

PATIENT
  Age: 44 Year
  Sex: Male
  Weight: 107 kg

DRUGS (3)
  1. DELFLEX [Suspect]
     Active Substance: CALCIUM CHLORIDE\DEXTROSE MONOHYDRATE\MAGNESIUM CHLORIDE\SODIUM CHLORIDE\SODIUM LACTATE
     Indication: RENAL FAILURE CHRONIC
     Dosage: PERIONEAL DIALYSIS?
  2. LIBERTY CYCLER [Concomitant]
     Active Substance: DEVICE
  3. CYCLER TUBING SET [Concomitant]

REACTIONS (10)
  - Vomiting [None]
  - Peritonitis [None]
  - Diarrhoea [None]
  - Nausea [None]
  - Bacterial test positive [None]
  - Abdominal pain [None]
  - Pyrexia [None]
  - Inadequate aseptic technique in use of product [None]
  - Sepsis [None]
  - Small intestinal obstruction [None]

NARRATIVE: CASE EVENT DATE: 20140728
